FAERS Safety Report 4441627-0 (Version None)
Quarter: 2004Q3

REPORT INFORMATION
  Report Type: 
  Country: None (occurrence: None)
  Receive Date: 20040907
  Receipt Date: 20040824
  Transmission Date: 20050211
  Serious: Yes (Other)
  Sender: FDA-Public Use
  Company Number: 200418436GDDC

PATIENT
  Age: 13 Year
  Sex: Female

DRUGS (6)
  1. RIFAMPICIN [Suspect]
     Indication: MENINGITIS TUBERCULOUS
     Route: 048
  2. ISONIAZID [Suspect]
     Indication: MENINGITIS TUBERCULOUS
     Dosage: DOSE: UNK
  3. PYRAZINAMIDE [Suspect]
     Indication: MENINGITIS TUBERCULOUS
     Dosage: DOSE: UNK
  4. PYRIDOXINE [Suspect]
     Indication: MENINGITIS TUBERCULOUS
     Dosage: DOSE: UNK
  5. DEXAMETHASONE [Suspect]
     Indication: MENINGITIS TUBERCULOUS
     Dosage: DOSE: UNK
  6. ETHAMBUTOL HCL [Suspect]
     Indication: MENINGITIS TUBERCULOUS
     Dosage: DOSE: UNK

REACTIONS (4)
  - ARTHRALGIA [None]
  - BLOOD PARATHYROID HORMONE INCREASED [None]
  - DECREASED ACTIVITY [None]
  - HYPOCALCAEMIA [None]
